FAERS Safety Report 8240069-X (Version None)
Quarter: 2012Q1

REPORT INFORMATION
  Report Type: 
  Country: None (occurrence: None)
  Receive Date: 20120309
  Receipt Date: 20101103
  Transmission Date: 20120608
  Serious: Yes (Hospitalization)
  Sender: FDA-Public Use
  Company Number: PHHY2010US75598

PATIENT
  Age: 48 Year
  Sex: Female

DRUGS (6)
  1. ACETAMINOPHEN [Concomitant]
  2. POTASSIUM CHLORIDE [Concomitant]
  3. VITAMIN D [Concomitant]
  4. EXTAVIA [Suspect]
     Indication: MULTIPLE SCLEROSIS
     Dosage: 0.25 MG, QOD, SUBCUTANEOUS
     Route: 058
     Dates: start: 20100201
  5. ASPIRIN [Concomitant]
  6. WATER PILLS (AMMONIUM CHLORIDE, CAFFEINE) [Concomitant]

REACTIONS (3)
  - MULTIPLE SCLEROSIS RELAPSE [None]
  - GAIT DISTURBANCE [None]
  - BALANCE DISORDER [None]
